FAERS Safety Report 24588972 (Version 2)
Quarter: 2024Q4

REPORT INFORMATION
  Report Type: Spontaneous
  Country: SG (occurrence: SG)
  Receive Date: 20241107
  Receipt Date: 20241205
  Transmission Date: 20250115
  Serious: Yes (Death)
  Sender: ROCHE
  Company Number: SG-ROCHE-10000123899

PATIENT

DRUGS (1)
  1. GLOFITAMAB [Suspect]
     Active Substance: GLOFITAMAB
     Indication: Product used for unknown indication
     Route: 065

REACTIONS (1)
  - Haemophagocytic lymphohistiocytosis [Fatal]
